FAERS Safety Report 7390609-8 (Version None)
Quarter: 2011Q2

REPORT INFORMATION
  Report Type: 
  Country: None (occurrence: None)
  Receive Date: 20110404
  Receipt Date: 20110323
  Transmission Date: 20111010
  Serious: Yes (Hospitalization)
  Sender: FDA-Public Use
  Company Number: US-BIOGENIDEC-2011BI005241

PATIENT
  Age: 33 Year
  Sex: Female

DRUGS (2)
  1. AVONEX [Suspect]
     Indication: MULTIPLE SCLEROSIS
     Route: 030
     Dates: start: 20050627
  2. AVONEX [Suspect]
     Route: 030
     Dates: start: 20100707

REACTIONS (12)
  - BLADDER SPASM [None]
  - CONFUSIONAL STATE [None]
  - STAPHYLOCOCCAL INFECTION [None]
  - PNEUMONIA [None]
  - DEVICE OCCLUSION [None]
  - MUSCULAR WEAKNESS [None]
  - TREMOR [None]
  - PSORIASIS [None]
  - TINNITUS [None]
  - MULTIPLE SCLEROSIS RELAPSE [None]
  - ERYTHEMA INFECTIOSUM [None]
  - SLEEP APNOEA SYNDROME [None]
